FAERS Safety Report 9305395 (Version 1)
Quarter: 2013Q2

REPORT INFORMATION
  Report Type: Spontaneous
  Country: US (occurrence: US)
  Receive Date: 20130520
  Receipt Date: 20130520
  Transmission Date: 20140414
  Serious: Yes (Other)
  Sender: FDA-Public Use
  Company Number: COR_00008_2013

PATIENT
  Age: 9 Year
  Sex: Male

DRUGS (10)
  1. TENIPOSIDE [Suspect]
     Indication: LYMPHOHISTIOCYTOSIS
     Dosage: [TOTAL DOSAGE: 3.4 G/M E 2]
     Route: 042
  2. TENIPOSIDE [Suspect]
     Indication: OFF LABEL USE
     Dosage: [TOTAL DOSAGE: 3.4 G/M E 2]
     Route: 042
  3. ETOPOSIDE [Suspect]
     Indication: LYMPHOHISTIOCYTOSIS
     Dosage: [TOTAL DOSAGE: 6.9 G/M E 2]
     Route: 042
  4. ETOPOSIDE [Suspect]
     Indication: OFF LABEL USE
     Dosage: [TOTAL DOSAGE: 6.9 G/M E 2]
     Route: 042
  5. ETOPOSIDE [Suspect]
     Indication: LYMPHOHISTIOCYTOSIS
     Dosage: [TOTAL DOSAGE: 13.6 G/M E 2]
     Route: 048
  6. ETOPOSIDE [Suspect]
     Indication: OFF LABEL USE
     Dosage: [TOTAL DOSAGE: 13.6 G/M E 2]
     Route: 048
  7. STEROIDS [Concomitant]
  8. INDOMETHACIN /00003801/ [Concomitant]
  9. CICLOSPORIN [Concomitant]
  10. HUMAN NORMAL IMMUNOGLOBULIN [Concomitant]

REACTIONS (2)
  - Myelodysplastic syndrome [None]
  - Bone marrow transplant [None]
